FAERS Safety Report 10404844 (Version 1)
Quarter: 2014Q3

REPORT INFORMATION
  Report Type: Report from Study
  Country: US (occurrence: US)
  Receive Date: 20140825
  Receipt Date: 20140825
  Transmission Date: 20150326
  Serious: Yes (Other)
  Sender: FDA-Public Use
  Company Number: US-ROCHE-1452504

PATIENT
  Sex: Male
  Weight: 100.6 kg

DRUGS (11)
  1. ANDROGEL [Concomitant]
     Active Substance: TESTOSTERONE
     Dosage: 20.25MG/1.25 G,1.62% GIPM ,75 DISPENSE ,REFILL- 5.
     Route: 065
  2. HYDROCORTISONE. [Concomitant]
     Active Substance: HYDROCORTISONE
     Dosage: 150 TAB- REFILL, DISPENSE-11.
     Route: 048
  3. MELATONIN [Concomitant]
     Active Substance: MELATONIN
     Route: 048
  4. COZAAR [Concomitant]
     Active Substance: LOSARTAN POTASSIUM
     Dosage: DISPENSE-180, REFILL-3
     Route: 048
  5. OXCARBAZEPINE. [Concomitant]
     Active Substance: OXCARBAZEPINE
     Dosage: DISPENSED 180 TABLET,REFILL 0.
     Route: 048
  6. NUTROPIN AQ [Suspect]
     Active Substance: SOMATROPIN
     Indication: GROWTH HORMONE DEFICIENCY
     Route: 058
  7. HYDROCHLOROTHIAZIDE. [Concomitant]
     Active Substance: HYDROCHLOROTHIAZIDE
     Dosage: DISPENSE-90, REFILL-3
     Route: 065
  8. LEVOTHYROXINE [Concomitant]
     Active Substance: LEVOTHYROXINE
     Dosage: 30 TAB-DISPENSE, REFILL- 11
     Route: 048
  9. LIPITOR [Concomitant]
     Active Substance: ATORVASTATIN CALCIUM
     Dosage: DISPENDE-90, REFILL-3.
     Route: 048
  10. CARVEDILOL. [Concomitant]
     Active Substance: CARVEDILOL
     Dosage: DISPENSE-180, REFILL-3.
     Route: 048
  11. DDAVP [Concomitant]
     Active Substance: DESMOPRESSIN ACETATE
     Dosage: DISPENSE-45,REFILL-1
     Route: 048

REACTIONS (6)
  - Thirst [Unknown]
  - Hyperprolactinaemia [Unknown]
  - Blood testosterone decreased [Unknown]
  - Feeling abnormal [Unknown]
  - Somnolence [Unknown]
  - Fatigue [Unknown]
